FAERS Safety Report 22029588 (Version 1)
Quarter: 2023Q1

REPORT INFORMATION
  Report Type: Spontaneous
  Country: US (occurrence: US)
  Receive Date: 20230223
  Receipt Date: 20230223
  Transmission Date: 20230418
  Serious: No
  Sender: FDA-Public Use
  Company Number: US-BAYER-2023A023104

PATIENT
  Age: 68 Year
  Sex: Male

DRUGS (1)
  1. MIRALAX [Suspect]
     Active Substance: POLYETHYLENE GLYCOL 3350
     Indication: Constipation
     Dosage: 3-4 CAPFULS DOSE
     Route: 048
     Dates: start: 20230222, end: 20230222

REACTIONS (2)
  - Hyperhidrosis [Unknown]
  - Abdominal distension [Unknown]
